FAERS Safety Report 8819813 (Version 1)
Quarter: 2012Q4

REPORT INFORMATION
  Report Type: Report from Study
  Country: ES (occurrence: ES)
  Receive Date: 20121002
  Receipt Date: 20121002
  Transmission Date: 20130627
  Serious: Yes (Hospitalization, Other)
  Sender: FDA-Public Use
  Company Number: ES-009507513-1209ESP009841

PATIENT
  Age: 65 Year
  Sex: Male

DRUGS (14)
  1. TEMOZOLOMIDE [Suspect]
     Indication: GLIOBLASTOMA
     Dosage: 85 mg/m2, qd
     Dates: start: 20120321, end: 20120509
  2. TEMOZOLOMIDE [Suspect]
     Dosage: 75 mg/m2, qd
     Dates: start: 20120531, end: 20120711
  3. BEVACIZUMAB [Suspect]
     Indication: GLIOBLASTOMA
     Dosage: 890 mg, qd
     Dates: start: 20120321, end: 20120405
  4. BEVACIZUMAB [Suspect]
     Dosage: 890 mg, qd
     Dates: start: 20120521, end: 20120521
  5. BEVACIZUMAB [Suspect]
     Dosage: 890 mg, qd
     Dates: start: 20120614, end: 20120614
  6. BEVACIZUMAB [Suspect]
     Dosage: 890 mg, qd
     Dates: start: 20120628, end: 20120628
  7. BEVACIZUMAB [Suspect]
     Dosage: 890 UNK, UNK
     Dates: start: 20120419, end: 20120503
  8. FINASTERIDE [Concomitant]
     Indication: BENIGN PROSTATIC HYPERPLASIA
     Dosage: UNK
     Route: 048
     Dates: end: 20120913
  9. FORTECORTIN [Concomitant]
     Indication: GLIOBLASTOMA
     Dosage: UNK
     Route: 048
     Dates: start: 20120703, end: 20120913
  10. OMEPRAZOLE [Concomitant]
     Indication: PROPHYLAXIS AGAINST GASTROINTESTINAL ULCER
     Dosage: UNK
     Route: 048
     Dates: start: 20120703, end: 20120913
  11. TAMSULOSIN HYDROCHLORIDE [Concomitant]
     Indication: BENIGN PROSTATIC HYPERPLASIA
     Dosage: UNK
     Dates: start: 20120703, end: 20120913
  12. TAMSULOSIN HYDROCHLORIDE [Concomitant]
     Dosage: UNK
  13. SEPTRIN [Concomitant]
     Indication: MUCOSAL INFLAMMATION
     Dosage: UNK
     Route: 048
     Dates: end: 20120913
  14. ACETAMINOPHEN [Concomitant]
     Indication: PAIN
     Dosage: UNK
     Dates: end: 20120913

REACTIONS (3)
  - Mucosal inflammation [Not Recovered/Not Resolved]
  - Dyspnoea [Not Recovered/Not Resolved]
  - Pancytopenia [Not Recovered/Not Resolved]
